FAERS Safety Report 8084991-6 (Version None)
Quarter: 2012Q1

REPORT INFORMATION
  Report Type: 
  Country: None (occurrence: None)
  Receive Date: 20120128
  Receipt Date: 20110331
  Transmission Date: 20120608
  Serious: No
  Sender: FDA-Public Use
  Company Number: US-ABBOTT-11P-163-0716189-00

PATIENT
  Sex: Male
  Weight: 96.248 kg

DRUGS (6)
  1. FLONASE [Concomitant]
     Indication: HYPERSENSITIVITY
  2. METHOTREXATE [Concomitant]
     Dosage: 3TABSSUNINAM+PM3TABSMONAM
  3. FOLIC ACID [Concomitant]
     Indication: PSORIATIC ARTHROPATHY
  4. MELOXICAM [Concomitant]
     Indication: PSORIATIC ARTHROPATHY
  5. HUMIRA [Suspect]
     Indication: PSORIATIC ARTHROPATHY
     Route: 058
     Dates: start: 20110311
  6. METHOTREXATE [Concomitant]
     Indication: PSORIATIC ARTHROPATHY
     Dates: end: 20100901

REACTIONS (4)
  - INJECTION SITE PRURITUS [None]
  - INJECTION SITE SWELLING [None]
  - SKIN DISCOMFORT [None]
  - INJECTION SITE ERYTHEMA [None]
